FAERS Safety Report 8499401-4 (Version None)
Quarter: 2012Q3

REPORT INFORMATION
  Report Type: 
  Country: None (occurrence: None)
  Receive Date: 20120710
  Receipt Date: 20120705
  Transmission Date: 20120928
  Serious: No
  Sender: FDA-Public Use
  Company Number: US-BAYER-2012-067866

PATIENT
  Sex: Female
  Weight: 99.773 kg

DRUGS (1)
  1. MIRENA [Suspect]
     Indication: CONTRACEPTION
     Dosage: 20 MCG/24HR, CONT
     Route: 015
     Dates: start: 20101001

REACTIONS (5)
  - PAIN IN EXTREMITY [None]
  - APATHY [None]
  - VARICOSE VEIN [None]
  - DEPRESSION [None]
  - WEIGHT INCREASED [None]
